FAERS Safety Report 8925517 (Version 1)
Quarter: 2012Q4

REPORT INFORMATION
  Report Type: 
  Country: US (occurrence: US)
  Receive Date: 20121126
  Receipt Date: 20121126
  Transmission Date: 20130627
  Serious: Yes (Hospitalization)
  Sender: FDA-Public Use
  Company Number: US-BAYER-2012-119926

PATIENT
  Age: 37 Year
  Sex: Female

DRUGS (6)
  1. OCELLA [Suspect]
  2. YASMIN [Suspect]
     Indication: BIRTH CONTROL
  3. YASMIN [Suspect]
     Indication: MENSTRUAL IRREGULARITY
  4. METFORMIN [Concomitant]
     Indication: POLYCYSTIC OVARY
  5. ASPIRIN [Concomitant]
  6. VITAMIN D [Concomitant]

REACTIONS (2)
  - Deep vein thrombosis [None]
  - Pulmonary embolism [None]
